FAERS Safety Report 5949387-9 (Version None)
Quarter: 2008Q4

REPORT INFORMATION
  Report Type: 
  Country: None (occurrence: None)
  Receive Date: 20081112
  Receipt Date: 20081030
  Transmission Date: 20090506
  Serious: Yes (Hospitalization, Other)
  Sender: FDA-Public Use
  Company Number: PHHY2008FR12938

PATIENT
  Sex: Male

DRUGS (10)
  1. LEPONEX [Suspect]
     Indication: SCHIZOPHRENIA
     Dosage: 150-250MG/DAY
     Dates: start: 20080326
  2. NORSET [Suspect]
     Indication: DEPRESSION
     Dosage: UNK
     Route: 048
     Dates: start: 20080125
  3. LEVOTHYROX [Suspect]
     Indication: HYPOTHYROIDISM
     Dosage: 75 UG, QD
     Dates: start: 20071224
  4. XATRAL [Suspect]
     Indication: BENIGN PROSTATIC HYPERPLASIA
     Dosage: 10 MG, QD
     Dates: start: 20080207, end: 20080401
  5. ATARAX [Suspect]
     Indication: ANXIETY
     Dosage: 12.5 MG, QD
     Dates: start: 20080326, end: 20080401
  6. RIVOTRIL [Suspect]
     Indication: EPILEPSY
     Dosage: 8 MG/DAY
     Route: 048
     Dates: start: 20080326
  7. RIVOTRIL [Suspect]
     Dosage: 1 MG/DAY
     Route: 048
  8. AMOXICILLIN TRIHYDRATE [Suspect]
     Indication: INFECTION
     Dosage: 2 G/DAY
     Route: 048
     Dates: start: 20080328, end: 20080403
  9. DOLIPRANE [Suspect]
     Indication: PARKINSONISM
     Dosage: 4 G/DAY
     Route: 048
     Dates: start: 20080328
  10. LEPTICUR [Suspect]
     Indication: PARKINSONISM
     Dosage: 10 MG, BID
     Route: 048
     Dates: start: 20080225

REACTIONS (8)
  - ACUTE TONSILLITIS [None]
  - C-REACTIVE PROTEIN INCREASED [None]
  - DYSPHAGIA [None]
  - DYSPNOEA [None]
  - EOSINOPHIL COUNT INCREASED [None]
  - EOSINOPHILIA [None]
  - PYREXIA [None]
  - WHITE BLOOD CELL COUNT INCREASED [None]
